FAERS Safety Report 7312835-6 (Version None)
Quarter: 2011Q1

REPORT INFORMATION
  Report Type: 
  Country: None (occurrence: None)
  Receive Date: 20110224
  Receipt Date: 20110217
  Transmission Date: 20110831
  Serious: Yes (Hospitalization)
  Sender: FDA-Public Use
  Company Number: US-US-EMD SERONO, INC.-231213J10USA

PATIENT
  Sex: Female

DRUGS (2)
  1. MULTIVITAMIN [Concomitant]
     Route: 065
  2. REBIF [Suspect]
     Indication: MULTIPLE SCLEROSIS
     Route: 058
     Dates: start: 20090812

REACTIONS (1)
  - DEHYDRATION [None]
